FAERS Safety Report 7471202-5 (Version None)
Quarter: 2011Q2

REPORT INFORMATION
  Report Type: 
  Country: None (occurrence: None)
  Receive Date: 20110510
  Receipt Date: 20110426
  Transmission Date: 20111010
  Serious: No
  Sender: FDA-Public Use
  Company Number: US-B.I. PHARMACEUTICALS,INC./RIDGEFIELD-2011-BP-11812BP

PATIENT
  Sex: Female

DRUGS (6)
  1. SPIRIVA [Suspect]
     Dosage: 18 MCG
     Route: 048
  2. SPIRIVA [Suspect]
     Indication: CHRONIC OBSTRUCTIVE PULMONARY DISEASE
     Dosage: 18 MCG
     Route: 055
  3. CRESTOR [Concomitant]
     Indication: BLOOD CHOLESTEROL INCREASED
     Dosage: 10 MG
  4. PLAVIX [Concomitant]
     Indication: ARTERIOSCLEROSIS
     Dosage: 75 MG
  5. CITALOPRAM HYDROBROMIDE [Concomitant]
     Indication: DEPRESSION
     Dosage: 40 MG
  6. ASPIRIN [Concomitant]
     Indication: ARTERIOSCLEROSIS
     Dosage: 81 MG

REACTIONS (4)
  - ASTHENIA [None]
  - DIZZINESS [None]
  - MELAENA [None]
  - INCORRECT ROUTE OF DRUG ADMINISTRATION [None]
